FAERS Safety Report 15251327 (Version 2)
Quarter: 2019Q1

REPORT INFORMATION
  Report Type: Report from Study
  Country: JP (occurrence: JP)
  Receive Date: 20180807
  Receipt Date: 20190326
  Transmission Date: 20190417
  Serious: Yes (Hospitalization)
  Sender: FDA-Public Use
  Company Number: JP-BIOGEN-2018BI00617894

PATIENT
  Age: 5 Year
  Sex: Female
  Weight: 13.4 kg

DRUGS (15)
  1. SPINRAZA [Suspect]
     Active Substance: NUSINERSEN
     Route: 050
     Dates: start: 20180829, end: 20180829
  2. MAGNESIUM OXIDE. [Concomitant]
     Active Substance: MAGNESIUM OXIDE
     Indication: PROPHYLAXIS
     Route: 048
  3. ATARAX-P [Concomitant]
     Active Substance: HYDROXYZINE HYDROCHLORIDE
     Indication: SEDATION
     Route: 042
     Dates: start: 20180711, end: 20180711
  4. CARBOCISTEINE [Concomitant]
     Active Substance: CARBOCYSTEINE
     Indication: PROPHYLAXIS
     Route: 048
  5. PENLES [Concomitant]
     Active Substance: LIDOCAINE
     Route: 065
     Dates: start: 20181017, end: 20181017
  6. SPINRAZA [Suspect]
     Active Substance: NUSINERSEN
     Route: 050
     Dates: start: 20181017, end: 20181017
  7. LAXOBERON [Concomitant]
     Active Substance: SODIUM PICOSULFATE
     Indication: PROPHYLAXIS
     Route: 048
  8. PANTOSIN [Concomitant]
     Active Substance: PANTETHINE
     Indication: PROPHYLAXIS
     Route: 048
  9. ATARAX-P [Concomitant]
     Active Substance: HYDROXYZINE HYDROCHLORIDE
     Route: 042
     Dates: start: 20180829, end: 20180829
  10. PENLES [Concomitant]
     Active Substance: LIDOCAINE
     Indication: SEDATION
     Route: 065
     Dates: start: 20180711, end: 20180711
  11. MUCOSAL [Concomitant]
     Indication: PROPHYLAXIS
     Route: 048
  12. ATARAX-P [Concomitant]
     Active Substance: HYDROXYZINE HYDROCHLORIDE
     Route: 042
     Dates: start: 20181017, end: 20181017
  13. PENLES [Concomitant]
     Active Substance: LIDOCAINE
     Route: 065
     Dates: start: 20180829, end: 20180829
  14. SPINRAZA [Suspect]
     Active Substance: NUSINERSEN
     Indication: SPINAL MUSCULAR ATROPHY
     Route: 050
     Dates: start: 20180711, end: 20180711
  15. CLARITH:DRYSYRUP [Concomitant]
     Indication: PROPHYLAXIS
     Route: 048

REACTIONS (2)
  - Hypoglycaemia [Recovered/Resolved]
  - Infection [Unknown]

NARRATIVE: CASE EVENT DATE: 20180714
